FAERS Safety Report 6665372-6 (Version None)
Quarter: 2010Q2

REPORT INFORMATION
  Report Type: 
  Country: None (occurrence: None)
  Receive Date: 20100402
  Receipt Date: 20100330
  Transmission Date: 20101027
  Serious: Yes (Hospitalization)
  Sender: FDA-Public Use
  Company Number: NL-ELI_LILLY_AND_COMPANY-NL201003003586

PATIENT
  Sex: Female

DRUGS (7)
  1. SOMATROPIN [Suspect]
     Indication: GROWTH HORMONE DEFICIENCY
     Dosage: 0.4 MG, UNKNOWN
     Route: 058
  2. THYROXIN [Concomitant]
     Indication: SECONDARY HYPOTHYROIDISM
     Dates: start: 19970101
  3. HYDROCORTISONE [Concomitant]
     Indication: RENAL FAILURE
     Dates: start: 19970101
  4. TRISEQUENS [Concomitant]
     Indication: SECONDARY HYPOGONADISM
     Dates: start: 20090901
  5. FOSAMAX [Concomitant]
     Indication: OSTEOPOROSIS
     Dates: start: 20010101
  6. EFFEXOR [Concomitant]
     Indication: DEPRESSION
     Dates: start: 19990101
  7. DHEA [Concomitant]
     Indication: ADRENAL INSUFFICIENCY
     Dates: start: 20050101

REACTIONS (1)
  - ADRENOCORTICAL INSUFFICIENCY ACUTE [None]
